FAERS Safety Report 11785135 (Version 1)
Quarter: 2015Q4

REPORT INFORMATION
  Report Type: Spontaneous
  Country: CH (occurrence: CH)
  Receive Date: 20151130
  Receipt Date: 20151130
  Transmission Date: 20160305
  Serious: Yes (Hospitalization)
  Sender: FDA-Public Use
  Company Number: CH-TEVA-611833ISR

PATIENT
  Age: 65 Year
  Sex: Male

DRUGS (7)
  1. FLUOROURACIL-TEVA [Suspect]
     Active Substance: FLUOROURACIL
     Dosage: FIRST CYCLE OF FOLFIRINOX THERAPY, GIVEN CONTINUOUSLY FOR 48HOURS, INTRAVENOUS VIALS
     Route: 041
     Dates: start: 20141029, end: 20141030
  2. CAMPTO [Suspect]
     Active Substance: IRINOTECAN
     Dosage: FIRST CYCLE OF FOLFIRINOX THERAPY, INFUSION AMPULES BAGS
     Route: 041
     Dates: start: 20141029, end: 20141029
  3. ELOXATIN [Suspect]
     Active Substance: OXALIPLATIN
     Dosage: FIRST CYCLE OF FOLFIRINOX THERAPY
     Route: 041
     Dates: start: 20141029, end: 20141029
  4. DIAMICRON [Concomitant]
     Active Substance: GLICLAZIDE
     Dosage: 60 MILLIGRAM DAILY; STRENGTH 30MG
     Route: 048
  5. ENATEC [Concomitant]
     Active Substance: ENALAPRIL MALEATE
     Dosage: 1 DOSAGE FORMS DAILY; STRENGTH 5MG
     Route: 048
  6. GALVUMET [Concomitant]
     Active Substance: METFORMIN HYDROCHLORIDE\VILDAGLIPTIN
     Dosage: 2 DOSAGE FORMS DAILY;
     Route: 048
  7. CALCIUM FOLINATE [Suspect]
     Active Substance: LEUCOVORIN CALCIUM
     Dosage: FIRST CYCLE OF FOLFIRINOX THERAPY, VIALS
     Route: 041

REACTIONS (7)
  - Vomiting [Recovered/Resolved]
  - Abdominal pain [Recovered/Resolved]
  - Nausea [Recovered/Resolved]
  - Pancreatitis acute [Recovered/Resolved]
  - Cough [Recovered/Resolved]
  - Productive cough [Recovered/Resolved]
  - Pancreatic enzymes increased [Recovered/Resolved]

NARRATIVE: CASE EVENT DATE: 20141101
